FAERS Safety Report 12225805 (Version 3)
Quarter: 2017Q1

REPORT INFORMATION
  Report Type: Spontaneous
  Country: US (occurrence: US)
  Receive Date: 20160331
  Receipt Date: 20170328
  Transmission Date: 20170428
  Serious: No
  Sender: FDA-Public Use
  Company Number: US-PFIZER INC-2016144039

PATIENT
  Age: 66 Year
  Sex: Female

DRUGS (1)
  1. PREMARIN [Suspect]
     Active Substance: ESTROGENS, CONJUGATED
     Dosage: 0.625, 1X/DAY

REACTIONS (4)
  - Syncope [Unknown]
  - Alopecia [Unknown]
  - Intentional product use issue [Unknown]
  - Stress [Unknown]
